FAERS Safety Report 18898360 (Version 1)
Quarter: 2021Q1

REPORT INFORMATION
  Report Type: Spontaneous
  Country: US (occurrence: US)
  Receive Date: 20210216
  Receipt Date: 20210216
  Transmission Date: 20210420
  Serious: Yes (Death, Hospitalization)
  Sender: FDA-Public Use
  Company Number: None

PATIENT
  Age: 72 Year
  Sex: Male
  Weight: 99 kg

DRUGS (1)
  1. WARFARIN (WARFARIN NA (EXELAN)2MG TAB) [Suspect]
     Active Substance: WARFARIN SODIUM
     Indication: ATRIAL FIBRILLATION
     Dosage: ?          OTHER DOSE:AS DIRECTED MG;?
     Route: 048
     Dates: start: 20170120, end: 20201014

REACTIONS (9)
  - Complications of transplanted kidney [None]
  - Nausea [None]
  - Anticoagulation drug level below therapeutic [None]
  - Toxicity to various agents [None]
  - Vomiting [None]
  - Gastric haemorrhage [None]
  - Acute kidney injury [None]
  - Small intestinal obstruction [None]
  - Hypophagia [None]

NARRATIVE: CASE EVENT DATE: 20201009
